FAERS Safety Report 8601994-0 (Version None)
Quarter: 2012Q3

REPORT INFORMATION
  Report Type: 
  Country: None (occurrence: None)
  Receive Date: 20120817
  Receipt Date: 20120810
  Transmission Date: 20120928
  Serious: Yes (Hospitalization, Other)
  Sender: FDA-Public Use
  Company Number: IT-ASTRAZENECA-2012SE54887

PATIENT
  Age: 80 Year
  Sex: Male

DRUGS (3)
  1. CASODEX [Suspect]
     Indication: PROSTATE CANCER
     Route: 048
  2. TRIPTORELIN [Suspect]
     Indication: PROSTATE CANCER
  3. SUPREFACT [Concomitant]
     Dosage: EVERY THREE MONTHS

REACTIONS (4)
  - HYPOGONADISM [None]
  - AMNESIA [None]
  - MYOCARDIAL ISCHAEMIA [None]
  - METABOLIC SYNDROME [None]
